FAERS Safety Report 22696306 (Version 3)
Quarter: 2023Q4

REPORT INFORMATION
  Report Type: Spontaneous
  Country: US (occurrence: US)
  Receive Date: 20230712
  Receipt Date: 20231207
  Transmission Date: 20240109
  Serious: No
  Sender: FDA-Public Use
  Company Number: US-AMGEN-USASP2023120511

PATIENT
  Age: 54 Year
  Sex: Male

DRUGS (2)
  1. REPATHA [Suspect]
     Active Substance: EVOLOCUMAB
     Indication: Product used for unknown indication
     Dosage: 420 MILLIGRAM
     Route: 065
     Dates: start: 202305
  2. REPATHA [Suspect]
     Active Substance: EVOLOCUMAB
     Dosage: 420 MILLIGRAM
     Route: 065

REACTIONS (5)
  - Product communication issue [Unknown]
  - Drug dose omission by device [Unknown]
  - Device difficult to use [Unknown]
  - Wrong technique in product usage process [Unknown]
  - Product preparation error [Unknown]

NARRATIVE: CASE EVENT DATE: 20230709
